FAERS Safety Report 6058223-4 (Version None)
Quarter: 2009Q1

REPORT INFORMATION
  Report Type: 
  Country: None (occurrence: None)
  Receive Date: 20090130
  Receipt Date: 20090122
  Transmission Date: 20090719
  Serious: Yes (Other)
  Sender: FDA-Public Use
  Company Number: US-JNJFOC-20090105926

PATIENT
  Age: 72 Year
  Sex: Male
  Weight: 158.76 kg

DRUGS (4)
  1. IMODIUM A-D [Suspect]
     Route: 048
  2. IMODIUM A-D [Suspect]
     Indication: DIARRHOEA
     Dosage: AS NECESSARY, IN THE MORNING
     Route: 048
  3. NOVOLIN INSULIN [Concomitant]
     Indication: TYPE 1 DIABETES MELLITUS
     Dosage: PER SLIDING SCALE
  4. CLONIDINE [Concomitant]
     Indication: HYPERTENSION

REACTIONS (2)
  - FAECES DISCOLOURED [None]
  - GASTROINTESTINAL HAEMORRHAGE [None]
